FAERS Safety Report 9911706 (Version 1)
Quarter: 2014Q1

REPORT INFORMATION
  Report Type: Spontaneous
  Country: CA (occurrence: CA)
  Receive Date: 20140219
  Receipt Date: 20140219
  Transmission Date: 20141002
  Serious: Yes (Other)
  Sender: FDA-Public Use
  Company Number: PHHY2014CA017745

PATIENT
  Age: 19 Year
  Sex: Female

DRUGS (11)
  1. RIFAMPICIN [Suspect]
  2. VANCOMYCIN [Suspect]
  3. HEPARIN SODIUM [Concomitant]
  4. ACETYLSALICYLIC ACID [Concomitant]
  5. THIAMINE [Concomitant]
  6. PANTOPRAZOLE [Concomitant]
  7. MAGNESIUM OXIDE [Concomitant]
  8. TRAMADOL [Concomitant]
  9. SENNA [Concomitant]
  10. LACTULOSE [Concomitant]
  11. DOCUSATE SODIUM [Concomitant]

REACTIONS (10)
  - Pseudolymphoma [Recovered/Resolved]
  - Rash papulosquamous [Recovered/Resolved]
  - Pruritus [Recovered/Resolved]
  - Rash maculo-papular [Recovered/Resolved]
  - Face oedema [Recovering/Resolving]
  - Rash pustular [Recovering/Resolving]
  - Blister [Recovering/Resolving]
  - Pyrexia [Recovering/Resolving]
  - Eczema [Recovering/Resolving]
  - Drug eruption [Recovered/Resolved]
